FAERS Safety Report 5677793-9 (Version None)
Quarter: 2008Q1

REPORT INFORMATION
  Report Type: 
  Country: None (occurrence: None)
  Receive Date: 20080324
  Receipt Date: 20080314
  Transmission Date: 20080703
  Serious: Yes (Hospitalization)
  Sender: FDA-Public Use
  Company Number: US-MERCK-0705USA02833

PATIENT
  Age: 35 Year
  Sex: Female
  Weight: 70 kg

DRUGS (9)
  1. FOSAMAX [Suspect]
     Indication: RESORPTION BONE INCREASED
     Route: 048
     Dates: start: 19980101, end: 19990101
  2. FOSAMAX [Suspect]
     Route: 048
     Dates: start: 19990101, end: 20010101
  3. FOSAMAX [Suspect]
     Route: 048
     Dates: start: 20010101
  4. FOSAMAX [Suspect]
     Indication: OSTEOPOROSIS
     Route: 048
     Dates: start: 19980101, end: 19990101
  5. FOSAMAX [Suspect]
     Route: 048
     Dates: start: 19990101, end: 20010101
  6. FOSAMAX [Suspect]
     Route: 048
     Dates: start: 20010101
  7. GLYBURIDE [Concomitant]
     Indication: DIABETES MELLITUS
     Route: 065
     Dates: start: 19930101
  8. METFORMIN [Concomitant]
     Route: 065
     Dates: start: 19960101
  9. PREMARIN [Concomitant]
     Route: 065

REACTIONS (9)
  - APHTHOUS STOMATITIS [None]
  - EXOSTOSIS [None]
  - HYPERSENSITIVITY [None]
  - INTERNAL FIXATION OF FRACTURE [None]
  - LIP SWELLING [None]
  - LOWER LIMB DEFORMITY [None]
  - OSTEOARTHRITIS [None]
  - TEMPOROMANDIBULAR JOINT SYNDROME [None]
  - UPPER RESPIRATORY TRACT INFECTION [None]
